FAERS Safety Report 18560032 (Version 1)
Quarter: 2020Q4

REPORT INFORMATION
  Report Type: Report from Study
  Country: DE (occurrence: DE)
  Receive Date: 20201130
  Receipt Date: 20201130
  Transmission Date: 20210114
  Serious: Yes (Hospitalization)
  Sender: FDA-Public Use
  Company Number: DE-SHIRE-DE201938356

PATIENT
  Age: 55 Year
  Sex: Male
  Weight: 58 kg

DRUGS (29)
  1. TEDUGLUTIDE [Suspect]
     Active Substance: TEDUGLUTIDE
     Indication: SHORT-BOWEL SYNDROME
     Dosage: 2.65 MILLIGRAM (TED DAILY DOSE MG KG 0.05, TED DOSES PER WEEK 7)
     Route: 065
     Dates: start: 20180306, end: 201807
  2. TEDUGLUTIDE [Suspect]
     Active Substance: TEDUGLUTIDE
     Dosage: 1.25 MILLIGRAM (TED DAILY DOSE MG KG 0.02, TED DOSES PER WEEK 7)
     Route: 065
     Dates: start: 20190117, end: 20190710
  3. TEDUGLUTIDE [Suspect]
     Active Substance: TEDUGLUTIDE
     Dosage: 1.6 MILLIGRAM (TED DAILY DOSE MG KG 0.3, TED DOSES PER WEEK 7)
     Route: 065
     Dates: start: 20190711, end: 20200204
  4. FERMED [CEFACLOR] [Concomitant]
     Indication: ANAEMIA
  5. PIPERACILLIN/TAZOBACTAM [Concomitant]
     Active Substance: PIPERACILLIN SODIUM\TAZOBACTAM SODIUM
     Indication: INFECTION
     Dosage: 4 GRAM, BID
     Route: 042
     Dates: start: 20201026
  6. TEDUGLUTIDE [Suspect]
     Active Substance: TEDUGLUTIDE
     Indication: SHORT-BOWEL SYNDROME
     Dosage: 2.65 MILLIGRAM (TED DAILY DOSE MG KG 0.05, TED DOSES PER WEEK 7)
     Route: 065
     Dates: start: 20180306, end: 201807
  7. TEDUGLUTIDE [Suspect]
     Active Substance: TEDUGLUTIDE
     Dosage: 1.25 MILLIGRAM (TED DAILY DOSE MG KG 0.02, TED DOSES PER WEEK 7)
     Route: 065
     Dates: start: 20190117, end: 20190710
  8. TEDUGLUTIDE [Suspect]
     Active Substance: TEDUGLUTIDE
     Dosage: 2.4 MILLIGRAM
     Route: 065
     Dates: start: 20200205
  9. CEFUROXIM [CEFUROXIME] [Concomitant]
     Active Substance: CEFUROXIME
     Indication: INFECTION
     Dosage: 750 MILLIGRAM, TID
     Route: 042
     Dates: start: 20201019, end: 20201026
  10. TEDUGLUTIDE [Suspect]
     Active Substance: TEDUGLUTIDE
     Indication: SHORT-BOWEL SYNDROME
     Dosage: 2.65 MILLIGRAM (TED DAILY DOSE MG KG 0.05, TED DOSES PER WEEK 7)
     Route: 065
     Dates: start: 20180306, end: 201807
  11. TEDUGLUTIDE [Suspect]
     Active Substance: TEDUGLUTIDE
     Indication: SHORT-BOWEL SYNDROME
     Dosage: 2.65 MILLIGRAM (TED DAILY DOSE MG KG 0.05, TED DOSES PER WEEK 7)
     Route: 065
     Dates: start: 20180306, end: 201807
  12. TEDUGLUTIDE [Suspect]
     Active Substance: TEDUGLUTIDE
     Dosage: 1.6 MILLIGRAM (TED DAILY DOSE MG KG 0.3, TED DOSES PER WEEK 7)
     Route: 065
     Dates: start: 20190711, end: 20200204
  13. TEDUGLUTIDE [Suspect]
     Active Substance: TEDUGLUTIDE
     Dosage: 3.0 MILLIGRAM (TED DAILY DOSE MG KG 0.05, TED DOSES PER WEEK 7)
     Route: 065
     Dates: start: 201807, end: 201811
  14. TEDUGLUTIDE [Suspect]
     Active Substance: TEDUGLUTIDE
     Dosage: 1.25 MILLIGRAM (TED DAILY DOSE MG KG 0.02, TED DOSES PER WEEK 7)
     Route: 065
     Dates: start: 20190117, end: 20190710
  15. TEDUGLUTIDE [Suspect]
     Active Substance: TEDUGLUTIDE
     Dosage: 1.6 MILLIGRAM (TED DAILY DOSE MG KG 0.3, TED DOSES PER WEEK 7)
     Route: 065
     Dates: start: 20190711, end: 20200204
  16. TEDUGLUTIDE [Suspect]
     Active Substance: TEDUGLUTIDE
     Dosage: 2.4 MILLIGRAM
     Route: 065
     Dates: start: 20200205
  17. TEDUGLUTIDE [Suspect]
     Active Substance: TEDUGLUTIDE
     Dosage: 2.4 MILLIGRAM
     Route: 065
     Dates: start: 20200205
  18. TEDUGLUTIDE [Suspect]
     Active Substance: TEDUGLUTIDE
     Dosage: 2.4 MILLIGRAM
     Route: 065
     Dates: start: 20200205
  19. BICANORM [Concomitant]
     Active Substance: SODIUM BICARBONATE
     Indication: CHRONIC KIDNEY DISEASE
  20. SELENASE [SODIUM SELENITE] [Concomitant]
     Indication: SELENIUM DEFICIENCY
  21. TEDUGLUTIDE [Suspect]
     Active Substance: TEDUGLUTIDE
     Dosage: 3.0 MILLIGRAM (TED DAILY DOSE MG KG 0.05, TED DOSES PER WEEK 7)
     Route: 065
     Dates: start: 201807, end: 201811
  22. CITALOPRAM [Concomitant]
     Active Substance: CITALOPRAM HYDROBROMIDE
     Indication: DEPRESSION
  23. FRUBIASE CALCIUM FORTE [Concomitant]
     Indication: SHORT-BOWEL SYNDROME
  24. FRUBIASE CALCIUM FORTE [Concomitant]
     Indication: SHORT-BOWEL SYNDROME
     Dosage: 350 MILLIGRAM, BID
     Route: 048
     Dates: start: 20200122
  25. TEDUGLUTIDE [Suspect]
     Active Substance: TEDUGLUTIDE
     Dosage: 3.0 MILLIGRAM (TED DAILY DOSE MG KG 0.05, TED DOSES PER WEEK 7)
     Route: 065
     Dates: start: 201807, end: 201811
  26. TEDUGLUTIDE [Suspect]
     Active Substance: TEDUGLUTIDE
     Dosage: 3.0 MILLIGRAM (TED DAILY DOSE MG KG 0.05, TED DOSES PER WEEK 7)
     Route: 065
     Dates: start: 201807, end: 201811
  27. TEDUGLUTIDE [Suspect]
     Active Substance: TEDUGLUTIDE
     Dosage: 1.25 MILLIGRAM (TED DAILY DOSE MG KG 0.02, TED DOSES PER WEEK 7)
     Route: 065
     Dates: start: 20190117, end: 20190710
  28. TEDUGLUTIDE [Suspect]
     Active Substance: TEDUGLUTIDE
     Dosage: 1.6 MILLIGRAM (TED DAILY DOSE MG KG 0.3, TED DOSES PER WEEK 7)
     Route: 065
     Dates: start: 20190711, end: 20200204
  29. FERMED [SACCHARATED IRON OXIDE] [Concomitant]
     Indication: ANAEMIA
     Dosage: 100 MILLIGRAM, 1/WEEK
     Route: 042
     Dates: start: 20190722, end: 20190805

REACTIONS (8)
  - Selenium deficiency [Not Recovered/Not Resolved]
  - Muscle spasms [Recovered/Resolved]
  - Electrolyte imbalance [Recovered/Resolved]
  - Sepsis [Not Recovered/Not Resolved]
  - Pruritus [Recovered/Resolved]
  - Protein deficiency [Recovered/Resolved]
  - Prerenal failure [Recovered/Resolved]
  - Candida infection [Recovered/Resolved with Sequelae]

NARRATIVE: CASE EVENT DATE: 20180701
